FAERS Safety Report 4296475-1 (Version None)
Quarter: 2004Q1

REPORT INFORMATION
  Report Type: 
  Country: None (occurrence: None)
  Receive Date: 20040122
  Receipt Date: 20031031
  Transmission Date: 20041129
  Serious: Yes (Other)
  Sender: FDA-Public Use
  Company Number: 2003116217

PATIENT

DRUGS (2)
  1. RELPAX [Suspect]
     Indication: ILL-DEFINED DISORDER
  2. TOPIRAMATE [Suspect]
     Indication: ILL-DEFINED DISORDER

REACTIONS (1)
  - UNEVALUABLE EVENT [None]
